FAERS Safety Report 12960040 (Version 3)
Quarter: 2017Q1

REPORT INFORMATION
  Report Type: Spontaneous
  Country: IT (occurrence: IT)
  Receive Date: 20161121
  Receipt Date: 20170117
  Transmission Date: 20170428
  Serious: Yes (Hospitalization)
  Sender: FDA-Public Use
  Company Number: IT-ROCHE-1856865

PATIENT
  Age: 50 Year
  Sex: Female

DRUGS (7)
  1. RIVOTRIL [Suspect]
     Active Substance: CLONAZEPAM
     Indication: PRODUCT USED FOR UNKNOWN INDICATION
     Dosage: 2.5 MG/ML ORAL DROPS SOLUTION BOTTLE 10 ML
     Route: 048
     Dates: start: 20130608, end: 20130608
  2. EUTIROX [Concomitant]
     Active Substance: LEVOTHYROXINE SODIUM
     Dosage: 75 MICROGRAM TABLETS 50 TABLETS
     Route: 048
  3. CITALOPRAM [Concomitant]
     Active Substance: CITALOPRAM HYDROBROMIDE
     Dosage: 20 MG FILM COATED TABLETS 14 TABLETS
     Route: 048
  4. PANTORC [Concomitant]
     Active Substance: PANTOPRAZOLE SODIUM
     Dosage: 14 X 20 MG GASTRORESISTANT TABLETS
     Route: 048
  5. DEPAKIN [Concomitant]
     Active Substance: VALPROATE SODIUM
     Dosage: CHRONO 500 MG PROLONGED RELEASE TABLETS
     Route: 048
  6. ZINADIUR [Concomitant]
     Active Substance: BENAZEPRIL HYDROCHLORIDE
     Dosage: 10 MG PLUS 12.5 MG FILM COATED TABLETS 28 TABLETS
     Route: 048
  7. CYMBALTA [Concomitant]
     Active Substance: DULOXETINE HYDROCHLORIDE
     Dosage: 60 MG GASTRORESISTANT HARD CAPSULES
     Route: 048

REACTIONS (3)
  - Drug abuse [Unknown]
  - Somnolence [Recovered/Resolved]
  - Sopor [Recovered/Resolved]

NARRATIVE: CASE EVENT DATE: 20130608
